FAERS Safety Report 8030270-2 (Version None)
Quarter: 2012Q1

REPORT INFORMATION
  Report Type: 
  Country: None (occurrence: None)
  Receive Date: 20120105
  Receipt Date: 20111222
  Transmission Date: 20120608
  Serious: Yes (Death)
  Sender: FDA-Public Use
  Company Number: AXC-2011-000534

PATIENT

DRUGS (1)
  1. URSODIOL [Suspect]
     Indication: BILIARY CIRRHOSIS PRIMARY

REACTIONS (6)
  - HEPATIC FIBROSIS [None]
  - RENAL IMPAIRMENT [None]
  - HEPATIC ATROPHY [None]
  - PORTAL VEIN THROMBOSIS [None]
  - PORTAL HYPERTENSION [None]
  - HEPATIC NEOPLASM MALIGNANT [None]
